FAERS Safety Report 8809827 (Version 1)
Quarter: 2012Q4

REPORT INFORMATION
  Report Type: 
  Country: JP (occurrence: JP)
  Receive Date: 20120926
  Receipt Date: 20120926
  Transmission Date: 20130627
  Serious: Yes (Death)
  Sender: FDA-Public Use
  Company Number: JP-ROCHE-1134324

PATIENT
  Age: 53 Year
  Sex: Male

DRUGS (6)
  1. RITUXIMAB [Suspect]
     Indication: LYMPHOMA
     Dosage: last dose prior to event: 29/may/2012
     Route: 042
     Dates: start: 20110506, end: 20120529
  2. GLOVENIN-I [Suspect]
     Indication: HYPOGLOBULINAEMIA
     Route: 065
     Dates: start: 20120710
  3. PLATELETS [Suspect]
     Indication: RED BLOOD CELL COUNT DECREASED
     Route: 065
     Dates: start: 20120711
  4. FLUDARABINE [Concomitant]
     Route: 065
     Dates: start: 20120418, end: 20120423
  5. MELPHALAN [Concomitant]
     Route: 065
     Dates: start: 20120418, end: 20120423
  6. HYDROCORTISON [Concomitant]

REACTIONS (8)
  - Pulmonary oedema [Fatal]
  - Acute respiratory distress syndrome [Fatal]
  - Hypoglobulinaemia [None]
  - Atrial fibrillation [None]
  - Tachycardia [None]
  - Pericardial effusion [None]
  - Blood count abnormal [None]
  - Respiratory failure [None]
